FAERS Safety Report 25729579 (Version 1)
Quarter: 2025Q3

REPORT INFORMATION
  Report Type: Spontaneous
  Country: US (occurrence: US)
  Receive Date: 20250827
  Receipt Date: 20250827
  Transmission Date: 20251021
  Serious: No
  Sender: ROCHE
  Company Number: US-ROCHE-10000372437

PATIENT
  Sex: Female

DRUGS (2)
  1. HEMLIBRA [Suspect]
     Active Substance: EMICIZUMAB-KXWH
     Indication: Von Willebrand^s disease
     Dosage: FORM STRENGTH: 150 MG/ML
     Route: 058
     Dates: start: 202310
  2. HEMLIBRA [Suspect]
     Active Substance: EMICIZUMAB-KXWH
     Dosage: FORM STRENGTH: 60 MG/.4 ML
     Route: 058
     Dates: start: 202310

REACTIONS (2)
  - Off label use [Unknown]
  - No adverse event [Unknown]
